FAERS Safety Report 7498467-8 (Version None)
Quarter: 2011Q2

REPORT INFORMATION
  Report Type: 
  Country: None (occurrence: None)
  Receive Date: 20110516
  Receipt Date: 20110510
  Transmission Date: 20111010
  Serious: Yes (Other)
  Sender: FDA-Public Use
  Company Number: 2011SP018195

PATIENT
  Age: 43 Year
  Sex: Male

DRUGS (2)
  1. CETIRIZINE HCL [Suspect]
     Indication: RHINITIS ALLERGIC
  2. HYDROXYZINE HYDROCHLORIDE [Suspect]
     Indication: RASH

REACTIONS (3)
  - DERMATITIS BULLOUS [None]
  - SKIN HYPERPIGMENTATION [None]
  - SKIN TEST POSITIVE [None]
